FAERS Safety Report 5113424-4 (Version None)
Quarter: 2006Q3

REPORT INFORMATION
  Report Type: 
  Country: None (occurrence: None)
  Receive Date: 20060921
  Receipt Date: 20060921
  Transmission Date: 20061208
  Serious: Yes (Hospitalization)
  Sender: FDA-Public Use
  Company Number: None

PATIENT
  Sex: Male

DRUGS (8)
  1. ASPIRIN [Suspect]
     Indication: MYOCARDIAL INFARCTION
     Dosage: 81 MG   DAILY   PO
     Route: 048
  2. VALPROIC ACID [Concomitant]
  3. QUETIAPINE [Concomitant]
  4. CITALOPRAM HYDROBROMIDE [Concomitant]
  5. FELODIPINE [Concomitant]
  6. ATENOLOL [Concomitant]
  7. BENZTROPINE MESYLATE [Concomitant]
  8. HALOPERIDOL DECANOATE [Concomitant]

REACTIONS (2)
  - GASTRIC ULCER [None]
  - HAEMATEMESIS [None]
